FAERS Safety Report 7386480-0 (Version None)
Quarter: 2011Q1

REPORT INFORMATION
  Report Type: 
  Country: None (occurrence: None)
  Receive Date: 20110323
  Receipt Date: 20110311
  Transmission Date: 20110831
  Serious: Yes (Disabling)
  Sender: FDA-Public Use
  Company Number: 2011MA002498

PATIENT
  Age: 72 Year
  Sex: Male

DRUGS (8)
  1. FELODIPINE [Suspect]
     Dosage: 5 MG;QD;PO
     Route: 048
     Dates: start: 20101219, end: 20110201
  2. LISINOPRIL [Concomitant]
  3. ACETYLSALICYLIC ACID SRT [Concomitant]
  4. AMLODIPINE BESYLATE [Suspect]
     Indication: HYPERTENSION
     Dosage: 10 MG;QD;PO
     Route: 048
  5. ATORVASTATIN [Concomitant]
  6. LISINOPRIL [Concomitant]
  7. FINASTERIDE [Suspect]
     Indication: PROSTATIC DISORDER
     Dosage: 5 MG;QD;PO
     Route: 048
  8. BISOPROLOL [Concomitant]

REACTIONS (6)
  - DRUG PRESCRIBING ERROR [None]
  - PAIN IN EXTREMITY [None]
  - DRUG DISPENSING ERROR [None]
  - ARTHRALGIA [None]
  - MYALGIA [None]
  - WRONG DRUG ADMINISTERED [None]
